FAERS Safety Report 20940561 (Version 2)
Quarter: 2022Q3

REPORT INFORMATION
  Report Type: Spontaneous
  Country: US (occurrence: US)
  Receive Date: 20220609
  Receipt Date: 20220705
  Transmission Date: 20221026
  Serious: Yes (Other)
  Sender: FDA-Public Use
  Company Number: US-MALLINCKRODT-T202202891

PATIENT
  Sex: Male
  Weight: 85 kg

DRUGS (2)
  1. H.P. ACTHAR [Suspect]
     Active Substance: CORTICOTROPIN
     Indication: Rheumatoid arthritis
     Dosage: 80 UNITS/1 MILLILITER, QW
     Route: 058
     Dates: start: 201812
  2. H.P. ACTHAR [Suspect]
     Active Substance: CORTICOTROPIN
     Dosage: 1 MILLILITER (80 UNITS), QW (ONCE A WEEK)
     Route: 058

REACTIONS (2)
  - Cardiac disorder [Unknown]
  - Cardiac ablation [Unknown]
